FAERS Safety Report 12203300 (Version 1)
Quarter: 2016Q1

REPORT INFORMATION
  Report Type: Spontaneous
  Country: US (occurrence: None)
  Receive Date: 20160321
  Receipt Date: 20160321
  Transmission Date: 20160526
  Serious: Yes (Hospitalization)
  Sender: FDA-Public Use
  Company Number: None

PATIENT
  Age: 70 Year
  Sex: Male
  Weight: 80.6 kg

DRUGS (2)
  1. TAXOL [Suspect]
     Active Substance: PACLITAXEL
     Dates: end: 20160212
  2. CARBOPLATIN. [Suspect]
     Active Substance: CARBOPLATIN
     Dates: end: 20160212

REACTIONS (7)
  - Performance status decreased [None]
  - Pyrexia [None]
  - Neutrophil count decreased [None]
  - Fatigue [None]
  - Epistaxis [None]
  - Productive cough [None]
  - Dyspnoea [None]

NARRATIVE: CASE EVENT DATE: 20160219
